FAERS Safety Report 5565422-4 (Version None)
Quarter: 2007Q4

REPORT INFORMATION
  Report Type: 
  Country: None (occurrence: None)
  Receive Date: 20071218
  Receipt Date: 20071206
  Transmission Date: 20080405
  Serious: Yes (Other)
  Sender: FDA-Public Use
  Company Number: US-PFIZER INC-2007063940

PATIENT
  Sex: Male
  Weight: 77.272 kg

DRUGS (6)
  1. XALATAN [Suspect]
     Indication: GLAUCOMA
  2. WARFARIN SODIUM [Concomitant]
  3. ZETIA [Concomitant]
  4. PAXIL [Concomitant]
  5. TRIAMTERENE [Concomitant]
  6. FOLATE [Concomitant]

REACTIONS (3)
  - INTRAOCULAR PRESSURE INCREASED [None]
  - LARYNGITIS [None]
  - TRABECULOPLASTY [None]
